FAERS Safety Report 25994125 (Version 1)
Quarter: 2025Q4

REPORT INFORMATION
  Report Type: Spontaneous
  Country: EU (occurrence: EU)
  Receive Date: 20251104
  Receipt Date: 20251104
  Transmission Date: 20260118
  Serious: Yes (Life-Threatening)
  Sender: AMGEN
  Company Number: None

PATIENT

DRUGS (12)
  1. FILGRASTIM [Suspect]
     Active Substance: FILGRASTIM
     Indication: Prophylaxis
     Dosage: AT EACH CYCLE
     Route: 065
  2. IFOSFAMIDE [Suspect]
     Active Substance: IFOSFAMIDE
     Indication: Central nervous system lymphoma
     Dosage: 800 MILLIGRAM/SQ. METER, 2 TIMES/WK (CYCLE 1-3/CYCLE 5)
     Route: 040
  3. METHOTREXATE [Suspect]
     Active Substance: METHOTREXATE
     Indication: Central nervous system lymphoma
     Dosage: 400 MILLIGRAM/SQ. METER, 2 TIMES/WK, (CYCLE 1-3)
     Route: 040
  4. METHOTREXATE [Suspect]
     Active Substance: METHOTREXATE
     Dosage: 400 MILLIGRAM/SQ. METER, 2 TIMES/WK, (CYCLE 5)
     Route: 040
  5. METHOTREXATE [Suspect]
     Active Substance: METHOTREXATE
     Dosage: 2.5 MILLIGRAM, 2 TIMES/WK EVERY 3 WEEKS (CYCLE 4+6/CYCLE 5)
     Route: 040
  6. PREDNISOLONE [Suspect]
     Active Substance: PREDNISOLONE
     Indication: Central nervous system lymphoma
     Dosage: 3 MILLIGRAM, 3 TIMES/WK, CYCLE 4+6
  7. PREDNISOLONE [Suspect]
     Active Substance: PREDNISOLONE
     Dosage: 3 MILLIGRAM, 3 TIMES/WK, CYCLE 5
  8. RITUXIMAB [Suspect]
     Active Substance: RITUXIMAB
     Indication: Central nervous system lymphoma
     Dosage: 375 MILLIGRAM PER MILLILITRE, 2 TIMES/WK CYCLE 1-3
     Route: 040
  9. SULFAMETHOXAZOLE\TRIMETHOPRIM [Suspect]
     Active Substance: SULFAMETHOXAZOLE\TRIMETHOPRIM
     Indication: Product used for unknown indication
     Dosage: AT EACH CYCLE
     Route: 065
  10. CYTARABINE [Suspect]
     Active Substance: CYTARABINE
     Indication: Central nervous system lymphoma
     Dosage: 3 MILLIGRAM, Q2WK, CYCLE 5
     Route: 040
  11. CYTARABINE [Suspect]
     Active Substance: CYTARABINE
     Dosage: 3 MILLIGRAM, Q2WK, CYCLE 4+6
     Route: 040
  12. ACYCLOVIR [Suspect]
     Active Substance: ACYCLOVIR
     Indication: Product used for unknown indication
     Dosage: AT EACH CYCLE
     Route: 065

REACTIONS (1)
  - Blood potassium decreased [Unknown]
